FAERS Safety Report 8042790-5 (Version None)
Quarter: 2012Q1

REPORT INFORMATION
  Report Type: 
  Country: None (occurrence: None)
  Receive Date: 20120112
  Receipt Date: 20120111
  Transmission Date: 20120608
  Serious: Yes (Death, Hospitalization)
  Sender: FDA-Public Use
  Company Number: DE-ROCHE-1028829

PATIENT
  Age: 67 Year
  Sex: Female
  Weight: 69 kg

DRUGS (6)
  1. RAMIPRIL [Concomitant]
     Dosage: 5/25 MG DAILY
     Dates: start: 19830101, end: 20120109
  2. CLOPIDOGREL [Concomitant]
     Dates: start: 20070701, end: 20120109
  3. TRAVOPROST AND TIMOLOL [Concomitant]
     Dosage: 1 DRP DAILY
     Dates: start: 20030101, end: 20120109
  4. METOPROLOL [Concomitant]
     Dates: start: 19830101, end: 20120109
  5. VEMURAFENIB [Suspect]
     Indication: MALIGNANT MELANOMA
     Dosage: LAST DOSE PRIOR TO SAE ON 04 JAN 2012, TEMPORARILY INTERRUPTED.
     Route: 048
     Dates: start: 20111121, end: 20120109
  6. SIMVASTATIN [Concomitant]
     Dates: start: 20000101, end: 20120109

REACTIONS (2)
  - DIABETIC KETOACIDOSIS [None]
  - COMA [None]
